FAERS Safety Report 18812006 (Version 1)
Quarter: 2021Q1

REPORT INFORMATION
  Report Type: Report from Study
  Country: None (occurrence: RO)
  Receive Date: 20210129
  Receipt Date: 20210129
  Transmission Date: 20210419
  Serious: Yes (Death)
  Sender: FDA-Public Use
  Company Number: RO-ABBVIE-21P-135-3750818-00

PATIENT
  Age: 63 Year
  Sex: Male
  Weight: 80 kg

DRUGS (4)
  1. SULFAMETHOXAZOLUM TRIMETHOPRIMUM [Concomitant]
     Indication: INFECTION PROPHYLAXIS
     Dosage: 400MG/80MG
  2. VORICONAZOLUM [Concomitant]
     Indication: INFECTION PROPHYLAXIS
  3. VENETOCLAX. [Suspect]
     Active Substance: VENETOCLAX
     Indication: ACUTE MYELOID LEUKAEMIA
     Route: 048
     Dates: start: 20210123
  4. ACYCLOVIR. [Concomitant]
     Active Substance: ACYCLOVIR
     Indication: INFECTION PROPHYLAXIS

REACTIONS (2)
  - Vomiting [Unknown]
  - Tumour lysis syndrome [Fatal]

NARRATIVE: CASE EVENT DATE: 20210123
